FAERS Safety Report 19030575 (Version 1)
Quarter: 2021Q1

REPORT INFORMATION
  Report Type: Report from Study
  Country: IT (occurrence: IT)
  Receive Date: 20210319
  Receipt Date: 20210319
  Transmission Date: 20210420
  Serious: Yes (Death)
  Sender: FDA-Public Use
  Company Number: IT-SHIONOGI, INC-2021000099

PATIENT

DRUGS (8)
  1. COLISTIN [Concomitant]
     Active Substance: COLISTIN
     Indication: PNEUMONIA
  2. FETROJA [Suspect]
     Active Substance: CEFIDEROCOL SULFATE TOSYLATE
     Indication: ACINETOBACTER BACTERAEMIA
  3. FETROJA [Suspect]
     Active Substance: CEFIDEROCOL SULFATE TOSYLATE
     Indication: SEPSIS
     Dosage: UNK
     Route: 065
  4. FETROJA [Suspect]
     Active Substance: CEFIDEROCOL SULFATE TOSYLATE
     Indication: PNEUMONIA
  5. COLISTIN [Concomitant]
     Active Substance: COLISTIN
     Indication: BACTERAEMIA
     Dosage: UNK
     Route: 065
  6. COLISTIN [Concomitant]
     Active Substance: COLISTIN
     Indication: ACINETOBACTER BACTERAEMIA
  7. COLISTIN [Concomitant]
     Active Substance: COLISTIN
     Indication: MULTIPLE-DRUG RESISTANCE
  8. FETROJA [Suspect]
     Active Substance: CEFIDEROCOL SULFATE TOSYLATE
     Indication: MULTIPLE-DRUG RESISTANCE

REACTIONS (9)
  - Gastrointestinal haemorrhage [Fatal]
  - Hepatosplenic candidiasis [Fatal]
  - Device related infection [Fatal]
  - Haemophagocytic lymphohistiocytosis [Fatal]
  - Staphylococcal infection [Fatal]
  - Candida infection [Fatal]
  - Clostridium difficile colitis [Fatal]
  - Systemic candida [Fatal]
  - Sepsis [Fatal]
